FAERS Safety Report 16983828 (Version 1)
Quarter: 2019Q4

REPORT INFORMATION
  Report Type: Spontaneous
  Country: GB (occurrence: GB)
  Receive Date: 20191101
  Receipt Date: 20191101
  Transmission Date: 20200122
  Serious: Yes (Hospitalization)
  Sender: FDA-Public Use
  Company Number: GB-MYLANLABS-2019M1103606

PATIENT
  Age: 49 Year
  Sex: Female

DRUGS (2)
  1. IBUPROFEN. [Suspect]
     Active Substance: IBUPROFEN
     Dosage: 342 MILLIGRAM (2-3 TIMES A DAY)
     Route: 048
     Dates: start: 20180719
  2. IBUPROFEN. [Suspect]
     Active Substance: IBUPROFEN
     Indication: TOOTHACHE
     Dosage: 200 MILLIGRAM (3-4 TIMES A DAY)
     Route: 048
     Dates: start: 20180719

REACTIONS (3)
  - Peptic ulcer haemorrhage [Recovered/Resolved]
  - Syncope [Unknown]
  - Melaena [Unknown]

NARRATIVE: CASE EVENT DATE: 20180722
